FAERS Safety Report 7110486-X (Version None)
Quarter: 2010Q4

REPORT INFORMATION
  Report Type: 
  Country: None (occurrence: None)
  Receive Date: 20101118
  Receipt Date: 20100930
  Transmission Date: 20110411
  Serious: No
  Sender: FDA-Public Use
  Company Number: US-MYLANLABS-2010S1017920

PATIENT
  Age: 40 Year
  Sex: Female

DRUGS (1)
  1. SUMATRIPTAN SUCCINATE [Suspect]
     Indication: MIGRAINE
     Dosage: FOR MIGRAINE
     Route: 048
     Dates: start: 20100801

REACTIONS (3)
  - DYSPHAGIA [None]
  - LARYNGEAL OEDEMA [None]
  - SENSATION OF FOREIGN BODY [None]
